FAERS Safety Report 9186678 (Version 1)
Quarter: 2013Q1

REPORT INFORMATION
  Report Type: Spontaneous
  Country: US (occurrence: US)
  Receive Date: 20130325
  Receipt Date: 20130325
  Transmission Date: 20140127
  Serious: No
  Sender: FDA-Public Use
  Company Number: US-MYLANLABS-2013S1003087

PATIENT
  Age: 58 Year
  Sex: Female

DRUGS (8)
  1. TACROLIMUS CAPSULES [Suspect]
     Indication: LIVER TRANSPLANT
     Route: 048
     Dates: start: 2010
  2. TACROLIMUS CAPSULES [Suspect]
     Indication: LIVER TRANSPLANT
     Route: 048
     Dates: start: 2010
  3. MYCOPHENOLATE [Concomitant]
     Indication: LIVER TRANSPLANT
     Dates: start: 2006
  4. ASACOL [Concomitant]
     Indication: COLITIS ULCERATIVE
  5. OMEPRAZOLE [Concomitant]
     Indication: GASTROOESOPHAGEAL REFLUX DISEASE
  6. CALCIUM [Concomitant]
  7. MAGNESIUM [Concomitant]
  8. VITAMIN [Concomitant]

REACTIONS (1)
  - Blood pressure increased [Not Recovered/Not Resolved]
